FAERS Safety Report 9616971 (Version 2)
Quarter: 2013Q4

REPORT INFORMATION
  Report Type: Spontaneous
  Country: NO (occurrence: NO)
  Receive Date: 20131011
  Receipt Date: 20131011
  Transmission Date: 20140711
  Serious: Yes (Other)
  Sender: FDA-Public Use
  Company Number: NO-VERTEX PHARMACEUTICALS INC-2013-010076

PATIENT
  Age: 54 Year
  Sex: Male

DRUGS (4)
  1. INCIVO [Suspect]
     Indication: HEPATITIS C
     Route: 048
     Dates: start: 20130110, end: 20130404
  2. PEGASYS [Concomitant]
     Indication: HEPATITIS C
     Dosage: UNK
     Dates: start: 20130110
  3. RIBAVIRIN [Concomitant]
     Indication: HEPATITIS C
     Dates: start: 20130110
  4. PERSANTIN RETARD [Concomitant]

REACTIONS (1)
  - Rash [Recovered/Resolved]
